FAERS Safety Report 10433838 (Version 2)
Quarter: 2014Q3

REPORT INFORMATION
  Report Type: Spontaneous
  Country: US (occurrence: US)
  Receive Date: 20140905
  Receipt Date: 20140905
  Transmission Date: 20150326
  Serious: Yes (Hospitalization)
  Sender: FDA-Public Use
  Company Number: US-GLAXOSMITHKLINE-A0744495A

PATIENT
  Sex: Male
  Weight: 100 kg

DRUGS (1)
  1. AVANDIA [Suspect]
     Active Substance: ROSIGLITAZONE MALEATE
     Indication: TYPE 2 DIABETES MELLITUS
     Dosage: 4MG TWICE PER DAY
     Route: 048
     Dates: start: 20000323, end: 20060316

REACTIONS (18)
  - Renal failure [Unknown]
  - Shock [Unknown]
  - Pneumonia [Unknown]
  - Pleural effusion [Unknown]
  - Ischaemic cardiomyopathy [Unknown]
  - Respiratory failure [Unknown]
  - Hepatic failure [Unknown]
  - Arteriosclerosis coronary artery [Unknown]
  - Carotid artery stenosis [Unknown]
  - Pulmonary oedema [Unknown]
  - Atrial fibrillation [Unknown]
  - Transient ischaemic attack [Unknown]
  - Myocardial infarction [Unknown]
  - Cerebrovascular accident [Unknown]
  - Cerebral infarction [Unknown]
  - Coronary artery disease [Unknown]
  - Cardiac failure congestive [Unknown]
  - Sepsis [Unknown]
